FAERS Safety Report 17247099 (Version 1)
Quarter: 2020Q1

REPORT INFORMATION
  Report Type: Spontaneous
  Country: US (occurrence: US)
  Receive Date: 20200107
  Receipt Date: 20200107
  Transmission Date: 20200409
  Serious: Yes (Death)
  Sender: FDA-Public Use
  Company Number: None

PATIENT
  Sex: Male

DRUGS (14)
  1. CALCITROL [Concomitant]
  2. CAREDILOL [Concomitant]
  3. ALLOPURINOL. [Concomitant]
     Active Substance: ALLOPURINOL
  4. MEXILETINE [Concomitant]
     Active Substance: MEXILETINE
  5. URSODIOL. [Concomitant]
     Active Substance: URSODIOL
  6. FLUOXETINE [Concomitant]
     Active Substance: FLUOXETINE HYDROCHLORIDE
  7. TRAMADOL. [Concomitant]
     Active Substance: TRAMADOL
  8. DAKINS FULL [Concomitant]
     Active Substance: SODIUM HYPOCHLORITE
  9. ALFUZOSIN [Concomitant]
     Active Substance: ALFUZOSIN
  10. GABAPENTIN. [Concomitant]
     Active Substance: GABAPENTIN
  11. ATORVASTATIN [Concomitant]
     Active Substance: ATORVASTATIN
  12. DIGOXIN. [Concomitant]
     Active Substance: DIGOXIN
  13. GLEEVEC [Suspect]
     Active Substance: IMATINIB MESYLATE
     Indication: PRODUCT USED FOR UNKNOWN INDICATION
     Route: 048
     Dates: start: 20180126
  14. ACCUCHECK [Concomitant]

REACTIONS (1)
  - Death [None]
